FAERS Safety Report 23379774 (Version 1)
Quarter: 2024Q1

REPORT INFORMATION
  Report Type: Spontaneous
  Country: US (occurrence: US)
  Receive Date: 20240108
  Receipt Date: 20240108
  Transmission Date: 20240409
  Serious: No
  Sender: FDA-Public Use
  Company Number: US-002147023-NVSC2024US003178

PATIENT
  Sex: Male

DRUGS (3)
  1. SANDOSTATIN LAR DEPOT [Suspect]
     Active Substance: OCTREOTIDE ACETATE
     Indication: Product used for unknown indication
     Dosage: 20 MG (EVERY 28 DAYS)
     Route: 065
     Dates: start: 202304
  2. SANDOSTATIN LAR DEPOT [Suspect]
     Active Substance: OCTREOTIDE ACETATE
  3. SANDOSTATIN LAR DEPOT [Suspect]
     Active Substance: OCTREOTIDE ACETATE

REACTIONS (9)
  - Abdominal discomfort [Unknown]
  - Abdominal distension [Unknown]
  - Nausea [Unknown]
  - Eructation [Unknown]
  - Fatigue [Unknown]
  - Decreased appetite [Unknown]
  - Brain fog [Unknown]
  - Diarrhoea [Unknown]
  - Faeces soft [Unknown]
